FAERS Safety Report 10595966 (Version 1)
Quarter: 2014Q4

REPORT INFORMATION
  Report Type: Spontaneous
  Country: FR (occurrence: FR)
  Receive Date: 20141120
  Receipt Date: 20141120
  Transmission Date: 20150529
  Serious: Yes (Hospitalization)
  Sender: FDA-Public Use
  Company Number: FR-SA-2014SA157044

PATIENT
  Age: 80 Year
  Sex: Female

DRUGS (8)
  1. MINOCYCLINE HYDROCHLORIDE. [Suspect]
     Active Substance: MINOCYCLINE HYDROCHLORIDE
     Indication: INFECTION
     Route: 065
     Dates: start: 20140304, end: 201404
  2. LEVOTHYROX [Concomitant]
     Active Substance: LEVOTHYROXINE
     Dosage: 82.5 MG, 1 IN 1
     Route: 048
  3. KARDEGIC [Concomitant]
     Active Substance: ASPIRIN LYSINE
     Dosage: STRENGTH: 75MG, IN DOSE SACHET
     Route: 048
     Dates: end: 201409
  4. RIFADIN [Suspect]
     Active Substance: RIFAMPIN
     Indication: INFECTION
     Route: 048
     Dates: start: 20140304, end: 201404
  5. COLCHICINE. [Concomitant]
     Active Substance: COLCHICINE
     Indication: GOUT
     Dosage: 1 MG: 2 TABLETS/ DAY
     Route: 048
     Dates: start: 20140910, end: 20140913
  6. INEXIUM [Concomitant]
     Active Substance: ESOMEPRAZOLE
     Dosage: STRENGTH: 20 MG, (1,1 IN 1)
     Route: 048
  7. ARESTAL [Concomitant]
     Active Substance: LOPERAMIDE OXIDE
     Dosage: 1 MG (1,1 IN 1)
     Route: 048
  8. BISOPROLOL [Concomitant]
     Active Substance: BISOPROLOL
     Route: 048

REACTIONS (1)
  - Acquired haemophilia [Not Recovered/Not Resolved]

NARRATIVE: CASE EVENT DATE: 2014
